FAERS Safety Report 6421832-4 (Version None)
Quarter: 2009Q4

REPORT INFORMATION
  Report Type: 
  Country: None (occurrence: None)
  Receive Date: 20091030
  Receipt Date: 20091021
  Transmission Date: 20100525
  Serious: Yes (Other)
  Sender: FDA-Public Use
  Company Number: D0062947A

PATIENT
  Sex: Male

DRUGS (4)
  1. ATMADISC FORTE [Suspect]
     Dosage: 550MCG TWICE PER DAY
     Route: 055
     Dates: start: 20010901
  2. BRONCHORETARD [Concomitant]
     Dosage: 500MG UNKNOWN
     Route: 048
     Dates: start: 20010901
  3. SINGULAIR [Concomitant]
     Dosage: 10MG PER DAY
     Route: 048
     Dates: start: 20010901
  4. ALBUTEROL [Concomitant]
     Dosage: .1MG SEE DOSAGE TEXT
     Route: 055
     Dates: start: 20010901

REACTIONS (3)
  - DRUG INEFFECTIVE [None]
  - DYSPNOEA [None]
  - PRODUCT QUALITY ISSUE [None]
